FAERS Safety Report 9161704 (Version 3)
Quarter: 2013Q3

REPORT INFORMATION
  Report Type: Spontaneous
  Country: US (occurrence: US)
  Receive Date: 20130314
  Receipt Date: 20130812
  Transmission Date: 20140515
  Serious: Yes (Hospitalization)
  Sender: FDA-Public Use
  Company Number: US-BIOGENIDEC-2013BI022051

PATIENT
  Age: 39 Year
  Sex: Female

DRUGS (2)
  1. TYSABRI [Suspect]
     Indication: MULTIPLE SCLEROSIS
     Route: 042
     Dates: start: 20091203, end: 20120412
  2. TYSABRI [Suspect]
     Indication: MULTIPLE SCLEROSIS
     Route: 042
     Dates: start: 20130110

REACTIONS (10)
  - Pneumonia [Unknown]
  - Thyroid neoplasm [Unknown]
  - Central nervous system lesion [Unknown]
  - Lethargy [Not Recovered/Not Resolved]
  - Communication disorder [Not Recovered/Not Resolved]
  - Mental disorder [Not Recovered/Not Resolved]
  - Exposure to toxic agent [Unknown]
  - Abulia [Not Recovered/Not Resolved]
  - General symptom [Not Recovered/Not Resolved]
  - Multiple sclerosis [Not Recovered/Not Resolved]
